FAERS Safety Report 14304555 (Version 1)
Quarter: 2017Q4

REPORT INFORMATION
  Report Type: Report from Study
  Country: JP (occurrence: JP)
  Receive Date: 20171219
  Receipt Date: 20171219
  Transmission Date: 20180321
  Serious: Yes (Life-Threatening, Other)
  Sender: FDA-Public Use
  Company Number: JP-OTSUKA-005525

PATIENT
  Age: 71 Year
  Sex: Female

DRUGS (12)
  1. RISPERDAL [Concomitant]
     Active Substance: RISPERIDONE
     Indication: SCHIZOPHRENIA
     Dosage: 2 MG, QD
     Route: 048
     Dates: start: 20080519, end: 20080710
  2. ARIPIPRAZOLE. [Suspect]
     Active Substance: ARIPIPRAZOLE
     Indication: SCHIZOPHRENIA
     Dosage: 12 MG, QD
     Route: 048
     Dates: start: 20080711, end: 20080723
  3. FLUNITRAZEPAM [Concomitant]
     Active Substance: FLUNITRAZEPAM
     Indication: INSOMNIA
     Dosage: 2 MG, QD
     Route: 048
     Dates: end: 20090728
  4. FLUNITRAZEPAM [Concomitant]
     Active Substance: FLUNITRAZEPAM
     Dosage: UNK
     Dates: end: 20090728
  5. ARIPIPRAZOLE. [Suspect]
     Active Substance: ARIPIPRAZOLE
     Dosage: 12 MG, BID
     Route: 048
     Dates: start: 20080801, end: 20090929
  6. ARIPIPRAZOLE. [Suspect]
     Active Substance: ARIPIPRAZOLE
     Dosage: 18 MG, QD
     Route: 048
     Dates: start: 20080724, end: 20080731
  7. BI SIFROL [Concomitant]
     Active Substance: PRAMIPEXOLE
     Dosage: 0.5 MG, QD
     Route: 048
     Dates: start: 20080819, end: 20090728
  8. AKINETON [Concomitant]
     Active Substance: BIPERIDEN HYDROCHLORIDE
     Indication: EXTRAPYRAMIDAL DISORDER
     Dosage: 3 MG, QD
     Dates: end: 20090728
  9. ARIPIPRAZOLE. [Suspect]
     Active Substance: ARIPIPRAZOLE
     Dosage: 18 MG, QD
     Route: 048
     Dates: start: 20081008
  10. RISPERDAL [Concomitant]
     Active Substance: RISPERIDONE
     Dosage: 1 MG, QD
     Route: 048
     Dates: start: 20080711, end: 20080717
  11. BI SIFROL [Concomitant]
     Active Substance: PRAMIPEXOLE
     Indication: EXTRAPYRAMIDAL DISORDER
     Dosage: 0.25 MG, QD
     Route: 048
     Dates: start: 20080707, end: 20080818
  12. SIFROL [Concomitant]
     Active Substance: PRAMIPEXOLE
     Dosage: BI SIFROL
     Dates: start: 20080707, end: 20090728

REACTIONS (2)
  - Pneumonia [Recovered/Resolved]
  - Hypotension [Unknown]

NARRATIVE: CASE EVENT DATE: 20080927
